FAERS Safety Report 7542306-3 (Version None)
Quarter: 2011Q2

REPORT INFORMATION
  Report Type: 
  Country: None (occurrence: None)
  Receive Date: 20110613
  Receipt Date: 20110605
  Transmission Date: 20111010
  Serious: Yes (Hospitalization)
  Sender: FDA-Public Use
  Company Number: US-B.I. PHARMACEUTICALS,INC./RIDGEFIELD-2011-BP-14675BP

PATIENT
  Sex: Female

DRUGS (1)
  1. PRADAXA [Suspect]

REACTIONS (8)
  - DISSEMINATED INTRAVASCULAR COAGULATION [None]
  - ACTIVATED PARTIAL THROMBOPLASTIN TIME PROLONGED [None]
  - FALL [None]
  - HAEMORRHAGE [None]
  - LIP HAEMORRHAGE [None]
  - OCULAR HYPERAEMIA [None]
  - BLOOD UREA NITROGEN/CREATININE RATIO DECREASED [None]
  - CHAPPED LIPS [None]
